FAERS Safety Report 5281612-2 (Version None)
Quarter: 2007Q1

REPORT INFORMATION
  Report Type: 
  Country: None (occurrence: None)
  Receive Date: 20070330
  Receipt Date: 20070323
  Transmission Date: 20070707
  Serious: Yes (Hospitalization)
  Sender: FDA-Public Use
  Company Number: CH-BAYER-200711755GDS

PATIENT
  Age: 40 Year
  Sex: Female

DRUGS (8)
  1. CIPROFLOXACIN HYDROCHLORIDE [Suspect]
     Indication: SOFT TISSUE INFECTION
     Dosage: UNIT DOSE: 500 MG
     Route: 048
     Dates: start: 20060928, end: 20061023
  2. CELLCEPT [Suspect]
     Indication: RENAL TRANSPLANT
     Dosage: UNIT DOSE: 250 MG
     Route: 048
     Dates: end: 20061110
  3. SIMVASTATIN [Suspect]
     Indication: DRUG USE FOR UNKNOWN INDICATION
     Route: 048
     Dates: end: 20061023
  4. OMEPRAZOL HELVEPHARM [Suspect]
     Indication: DRUG USE FOR UNKNOWN INDICATION
     Route: 048
     Dates: end: 20061023
  5. ZESTRIL [Suspect]
     Indication: DRUG USE FOR UNKNOWN INDICATION
     Route: 048
     Dates: end: 20061023
  6. METOLAZONE [Suspect]
     Indication: DRUG USE FOR UNKNOWN INDICATION
     Route: 048
     Dates: end: 20061023
  7. LASIX [Suspect]
     Indication: OEDEMA
     Route: 048
  8. PREDNISON AMINO [Concomitant]
     Indication: DRUG USE FOR UNKNOWN INDICATION
     Route: 048
     Dates: end: 20061110

REACTIONS (2)
  - CHOLESTASIS [None]
  - INCORRECT DOSE ADMINISTERED [None]
